FAERS Safety Report 15334248 (Version 2)
Quarter: 2018Q3

REPORT INFORMATION
  Report Type: Spontaneous
  Country: US (occurrence: US)
  Receive Date: 20180830
  Receipt Date: 20180903
  Transmission Date: 20181010
  Serious: No
  Sender: FDA-Public Use
  Company Number: US-PFIZER INC-2018348119

PATIENT
  Age: 53 Year
  Sex: Male
  Weight: 97.52 kg

DRUGS (6)
  1. NARDIL [Suspect]
     Active Substance: PHENELZINE SULFATE
     Indication: MAJOR DEPRESSION
     Dosage: 60 MG, DAILY
  2. AMLODIPINE [Concomitant]
     Active Substance: AMLODIPINE BESYLATE
     Indication: HYPERTENSION
     Dosage: 5 MG, ONCE A DAY
     Route: 048
  3. LOSARTAN. [Concomitant]
     Active Substance: LOSARTAN
     Indication: HYPERTENSION
     Dosage: 100 MG, 1X/DAY
     Route: 048
     Dates: start: 20180302
  4. NARDIL [Suspect]
     Active Substance: PHENELZINE SULFATE
     Indication: ANXIETY DISORDER
     Dosage: 45 MG, DAILY
     Dates: start: 1981
  5. METOPROLOL. [Concomitant]
     Active Substance: METOPROLOL
     Indication: HYPERTENSION
     Dosage: 50 MG, 1X/DAY
     Route: 048
  6. NARDIL [Suspect]
     Active Substance: PHENELZINE SULFATE
     Dosage: 30 MG, 3X/DAY (15MG TWO TABLETS BY MOUTH EVERY MORNING, AFTERNOON, AND BEDTIME)
     Route: 048

REACTIONS (5)
  - Feeling abnormal [Unknown]
  - Drug ineffective [Not Recovered/Not Resolved]
  - Weight increased [Not Recovered/Not Resolved]
  - Blood pressure increased [Unknown]
  - Constipation [Not Recovered/Not Resolved]

NARRATIVE: CASE EVENT DATE: 2003
